FAERS Safety Report 5902089-7 (Version None)
Quarter: 2008Q3

REPORT INFORMATION
  Report Type: 
  Country: None (occurrence: None)
  Receive Date: 20080919
  Receipt Date: 20080807
  Transmission Date: 20090109
  Serious: No
  Sender: FDA-Public Use
  Company Number: US-WYE-H05455108

PATIENT
  Age: 41 Year
  Sex: Female

DRUGS (5)
  1. PRISTIQ [Suspect]
     Indication: ANXIETY
     Dosage: 1.2 ^TAPERING OFF^, ORAL; 100 MG 1X PER 1 DAY ORAL
     Route: 048
     Dates: start: 20080701, end: 20080730
  2. PRISTIQ [Suspect]
     Indication: DEPRESSION
     Dosage: 1.2 ^TAPERING OFF^, ORAL; 100 MG 1X PER 1 DAY ORAL
     Route: 048
     Dates: start: 20080701, end: 20080730
  3. PRISTIQ [Suspect]
     Indication: ANXIETY
     Dosage: 1.2 ^TAPERING OFF^, ORAL; 100 MG 1X PER 1 DAY ORAL
     Route: 048
     Dates: start: 20080731
  4. PRISTIQ [Suspect]
     Indication: DEPRESSION
     Dosage: 1.2 ^TAPERING OFF^, ORAL; 100 MG 1X PER 1 DAY ORAL
     Route: 048
     Dates: start: 20080731
  5. EFFEXOR XR [Concomitant]

REACTIONS (1)
  - DRUG EFFECT DECREASED [None]
